FAERS Safety Report 6868572-5 (Version None)
Quarter: 2010Q3

REPORT INFORMATION
  Report Type: 
  Country: None (occurrence: None)
  Receive Date: 20100722
  Receipt Date: 20080604
  Transmission Date: 20110219
  Serious: No
  Sender: FDA-Public Use
  Company Number: US-PFIZER INC-2008048306

PATIENT
  Sex: Female
  Weight: 72.727 kg

DRUGS (3)
  1. CHANTIX [Suspect]
     Indication: SMOKING CESSATION THERAPY
     Dates: start: 20080531
  2. ANTIBIOTICS [Suspect]
     Indication: SINUSITIS
     Dates: start: 20080501
  3. SERTRALINE HCL [Concomitant]

REACTIONS (1)
  - RASH [None]
